FAERS Safety Report 5200436-5 (Version None)
Quarter: 2007Q1

REPORT INFORMATION
  Report Type: 
  Country: None (occurrence: None)
  Receive Date: 20070105
  Receipt Date: 20061221
  Transmission Date: 20070707
  Serious: Yes (Hospitalization)
  Sender: FDA-Public Use
  Company Number: JP-SHR-JP-2006-038271

PATIENT
  Age: 31 Year
  Sex: Male

DRUGS (6)
  1. BETASERON [Suspect]
     Indication: MULTIPLE SCLEROSIS
     Dosage: 1.6 MIU, 1X/DAY
     Route: 058
     Dates: start: 20061101, end: 20061101
  2. PREDONINE [Concomitant]
     Indication: MULTIPLE SCLEROSIS
     Dosage: 5 MG, 1X/DAY
     Route: 048
     Dates: start: 20061014
  3. ACTONEL [Concomitant]
     Indication: OSTEOPOROSIS
     Dosage: 2.5 MG, 1X/DAY
     Route: 048
     Dates: start: 20060926
  4. ONE-ALPHA [Concomitant]
     Indication: OSTEOPOROSIS
     Dosage: 1 A?G, 1X/DAY
     Route: 048
     Dates: start: 20060926
  5. GASTER [Concomitant]
     Indication: GASTRIC ULCER
     Dosage: 20 MG, 1X/DAY
     Route: 048
     Dates: start: 20060926
  6. NORVASC [Concomitant]
     Indication: HYPERTENSION
     Dosage: 2.5 MG, 1X/DAY
     Route: 048
     Dates: start: 20060926

REACTIONS (4)
  - BAND NEUTROPHIL COUNT INCREASED [None]
  - LYMPHOCYTE MORPHOLOGY ABNORMAL [None]
  - PLATELET COUNT DECREASED [None]
  - RASH GENERALISED [None]
